FAERS Safety Report 16559708 (Version 2)
Quarter: 2020Q1

REPORT INFORMATION
  Report Type: Report from Study
  Country: JP (occurrence: JP)
  Receive Date: 20190711
  Receipt Date: 20200209
  Transmission Date: 20200409
  Serious: Yes (Other)
  Sender: FDA-Public Use
  Company Number: JP-SA-2019SA183532

PATIENT
  Age: 69 Year
  Sex: Male
  Weight: 58 kg

DRUGS (39)
  1. 5-FU [FLUOROURACIL] [Concomitant]
     Active Substance: FLUOROURACIL
     Dosage: 200 MG/M2, 1X
     Route: 040
     Dates: start: 20190118, end: 20190118
  2. 5-FU [FLUOROURACIL] [Concomitant]
     Active Substance: FLUOROURACIL
     Dosage: 2340 MG/M2, 1X
     Route: 041
     Dates: start: 20190301, end: 20190301
  3. LEUCOVORIN CA [Concomitant]
     Active Substance: LEUCOVORIN CALCIUM
     Dosage: 400 MG/M2, QOW
     Route: 065
     Dates: start: 20180928, end: 20181109
  4. LEUCOVORIN CA [Concomitant]
     Active Substance: LEUCOVORIN CALCIUM
     Dosage: 400 MG/M2, 1X
     Route: 065
     Dates: start: 20181122, end: 20181122
  5. AFLIBERCEPT [Suspect]
     Active Substance: AFLIBERCEPT
     Dosage: 2 MG/KG (115 MG/BODY), 1X
     Route: 041
     Dates: start: 20181122, end: 20181122
  6. 5-FU [FLUOROURACIL] [Concomitant]
     Active Substance: FLUOROURACIL
     Dosage: 200 MG/M2, 1X
     Route: 040
     Dates: start: 20181221, end: 20181221
  7. IRINOTECAN [Concomitant]
     Active Substance: IRINOTECAN
     Dosage: 150 MG/M2, QOW
     Route: 065
     Dates: start: 20180525, end: 20180803
  8. IRINOTECAN [Concomitant]
     Active Substance: IRINOTECAN
     Dosage: 200 MG/M2, QOW
     Route: 065
     Dates: start: 20180928, end: 20181109
  9. LEUCOVORIN CA [Concomitant]
     Active Substance: LEUCOVORIN CALCIUM
     Dosage: UNK
     Route: 065
  10. AFLIBERCEPT [Suspect]
     Active Substance: AFLIBERCEPT
     Dosage: 2 MG/KG, 1X
     Route: 041
     Dates: start: 20181221, end: 20181221
  11. 5-FU [FLUOROURACIL] [Concomitant]
     Active Substance: FLUOROURACIL
     Dosage: 200 MG/M2, QOW
     Route: 040
     Dates: start: 20180928, end: 20181109
  12. 5-FU [FLUOROURACIL] [Concomitant]
     Active Substance: FLUOROURACIL
     Dosage: 2340 MG/M2, 1X
     Route: 041
     Dates: start: 20181221, end: 20181221
  13. 5-FU [FLUOROURACIL] [Concomitant]
     Active Substance: FLUOROURACIL
     Dosage: 2340 MG/M2, 1X
     Route: 041
     Dates: start: 20190118, end: 20190118
  14. IRINOTECAN [Concomitant]
     Active Substance: IRINOTECAN
     Dosage: 200 MG/M2, 1X
     Route: 065
     Dates: start: 20181122, end: 20181122
  15. IRINOTECAN [Concomitant]
     Active Substance: IRINOTECAN
     Dosage: 200 MG/M2, 1X
     Route: 065
     Dates: start: 20190118, end: 20190118
  16. IRINOTECAN [Concomitant]
     Active Substance: IRINOTECAN
     Dosage: 200 MG/M2, 1X
     Route: 065
     Dates: start: 20190301, end: 20190301
  17. IRINOTECAN [Concomitant]
     Active Substance: IRINOTECAN
     Dosage: UNK
     Route: 065
  18. AFLIBERCEPT [Suspect]
     Active Substance: AFLIBERCEPT
     Dosage: 2 MG/KG, 1X
     Route: 041
     Dates: start: 20190301, end: 20190301
  19. AFLIBERCEPT [Suspect]
     Active Substance: AFLIBERCEPT
     Dosage: 2 MG/KG, 1X
     Route: 041
     Dates: start: 20181026, end: 20181026
  20. 5-FU [FLUOROURACIL] [Concomitant]
     Active Substance: FLUOROURACIL
     Dosage: 2340 MG/M2, QOW
     Route: 041
     Dates: start: 20180928, end: 20181109
  21. LEUCOVORIN CA [Concomitant]
     Active Substance: LEUCOVORIN CALCIUM
     Indication: COLON CANCER
     Dosage: 400 MG/M2, QOW
     Route: 065
     Dates: start: 20180817, end: 20180831
  22. 5-FU [FLUOROURACIL] [Concomitant]
     Active Substance: FLUOROURACIL
     Indication: COLON CANCER
     Dosage: 200 MG/M2, QOW
     Route: 040
     Dates: start: 20180817, end: 20180831
  23. 5-FU [FLUOROURACIL] [Concomitant]
     Active Substance: FLUOROURACIL
     Dosage: 2340 MG/M2, QOW
     Route: 041
     Dates: start: 20180525, end: 20180803
  24. 5-FU [FLUOROURACIL] [Concomitant]
     Active Substance: FLUOROURACIL
     Dosage: 200 MG/M2, 1X
     Route: 040
     Dates: start: 20181122, end: 20181122
  25. 5-FU [FLUOROURACIL] [Concomitant]
     Active Substance: FLUOROURACIL
     Dosage: 2340 MG/M2, 1X
     Route: 041
     Dates: start: 20181122, end: 20181122
  26. IRINOTECAN [Concomitant]
     Active Substance: IRINOTECAN
     Indication: COLON CANCER
     Dosage: 200 MG/M2, QOW
     Route: 065
     Dates: start: 20180817, end: 20180831
  27. NEUTROGIN [Concomitant]
     Active Substance: LENOGRASTIM
     Indication: NEUTROPENIA
     Dosage: UNK
     Route: 065
     Dates: start: 20180725, end: 20180725
  28. AFLIBERCEPT [Suspect]
     Active Substance: AFLIBERCEPT
     Indication: COLON CANCER
     Dosage: 3.97 MG/KG (230 MG/BODY), QOW
     Route: 041
     Dates: start: 20180525, end: 20180831
  29. 5-FU [FLUOROURACIL] [Concomitant]
     Active Substance: FLUOROURACIL
     Dosage: 2340 MG/M2, QOW
     Route: 041
     Dates: start: 20180817, end: 20180831
  30. LEUCOVORIN CA [Concomitant]
     Active Substance: LEUCOVORIN CALCIUM
     Dosage: 200 MG/M2, QOW
     Route: 065
     Dates: start: 20180525, end: 20180803
  31. LEUCOVORIN CA [Concomitant]
     Active Substance: LEUCOVORIN CALCIUM
     Dosage: 400 MG/M2, 1X
     Route: 065
     Dates: start: 20190118, end: 20190118
  32. 5-FU [FLUOROURACIL] [Concomitant]
     Active Substance: FLUOROURACIL
     Dosage: 400 MG/M2, QOW
     Route: 040
     Dates: start: 20180525, end: 20180803
  33. 5-FU [FLUOROURACIL] [Concomitant]
     Active Substance: FLUOROURACIL
     Dosage: 200 MG/M2, 1X
     Route: 040
     Dates: start: 20190301, end: 20190301
  34. IRINOTECAN [Concomitant]
     Active Substance: IRINOTECAN
     Dosage: 200 MG/M2, 1X
     Route: 065
     Dates: start: 20181221, end: 20181221
  35. LEUCOVORIN CA [Concomitant]
     Active Substance: LEUCOVORIN CALCIUM
     Dosage: 400 MG/M2, 1X
     Route: 065
     Dates: start: 20181221, end: 20181221
  36. NEUTROGIN [Concomitant]
     Active Substance: LENOGRASTIM
     Indication: FEBRILE NEUTROPENIA
     Dosage: UNK
     Route: 065
     Dates: start: 20180921, end: 20180921
  37. AFLIBERCEPT [Suspect]
     Active Substance: AFLIBERCEPT
     Dosage: 2 MG/KG (115 MG/BODY), QOW
     Route: 041
     Dates: start: 20180928, end: 20180928
  38. 5-FU [FLUOROURACIL] [Concomitant]
     Active Substance: FLUOROURACIL
     Dosage: UNK
     Route: 065
  39. LEUCOVORIN CA [Concomitant]
     Active Substance: LEUCOVORIN CALCIUM
     Dosage: 400 MG/M2, 1X
     Route: 065
     Dates: start: 20190301, end: 20190301

REACTIONS (2)
  - Hypertension [Recovering/Resolving]
  - Hypertensive crisis [Unknown]

NARRATIVE: CASE EVENT DATE: 20180928
